FAERS Safety Report 8881285 (Version 1)
Quarter: 2012Q4

REPORT INFORMATION
  Report Type: 
  Country: US (occurrence: US)
  Receive Date: 20121031
  Receipt Date: 20121031
  Transmission Date: 20130627
  Serious: Yes (Hospitalization)
  Sender: FDA-Public Use
  Company Number: US-JNJFOC-20121013453

PATIENT
  Sex: Male

DRUGS (3)
  1. MOTRIN IB [Suspect]
     Route: 065
  2. MOTRIN IB [Suspect]
     Indication: ANALGESIC THERAPY
     Route: 065
  3. LISINOPRIL [Concomitant]

REACTIONS (4)
  - Pancreatitis [Unknown]
  - Blood creatinine increased [Recovered/Resolved]
  - Complement factor decreased [Unknown]
  - Eosinophils urine present [Unknown]
